FAERS Safety Report 5023107-7 (Version None)
Quarter: 2006Q2

REPORT INFORMATION
  Report Type: 
  Country: None (occurrence: None)
  Receive Date: 20060605
  Receipt Date: 20060522
  Transmission Date: 20061013
  Serious: Yes (Hospitalization)
  Sender: FDA-Public Use
  Company Number: S06-FRA-01977-01

PATIENT
  Age: 79 Year
  Sex: Female
  Weight: 60 kg

DRUGS (7)
  1. MEMANTINE HCL [Suspect]
     Indication: DEMENTIA
     Dates: start: 20040101, end: 20060324
  2. EXELON [Suspect]
     Indication: DEMENTIA
     Dates: start: 20040101, end: 20060324
  3. ATHYMIL (MIANSERIN HYDROCHLORIDE) [Suspect]
     Dosage: 0.5 QD PO
     Route: 048
     Dates: start: 20050101, end: 20060324
  4. PLAVIX [Concomitant]
  5. DITROPAN [Concomitant]
  6. AMLODIPINE BESYLATE [Concomitant]
  7. URBANYL (CLOBAZAM) [Concomitant]

REACTIONS (2)
  - CONDITION AGGRAVATED [None]
  - PETIT MAL EPILEPSY [None]
